FAERS Safety Report 16588977 (Version 2)
Quarter: 2019Q3

REPORT INFORMATION
  Report Type: Spontaneous
  Country: JP (occurrence: JP)
  Receive Date: 20190718
  Receipt Date: 20190731
  Transmission Date: 20191004
  Serious: Yes (Other)
  Sender: FDA-Public Use
  Company Number: JP-ROCHE-2357107

PATIENT
  Age: 70 Year
  Sex: Male

DRUGS (3)
  1. EYLEA [Concomitant]
     Active Substance: AFLIBERCEPT
     Indication: RETINAL VEIN OCCLUSION
     Route: 031
  2. LUCENTIS [Suspect]
     Active Substance: RANIBIZUMAB
     Route: 031
     Dates: start: 20190718
  3. LUCENTIS [Suspect]
     Active Substance: RANIBIZUMAB
     Indication: RETINAL VEIN OCCLUSION
     Route: 031

REACTIONS (4)
  - Epidural haemorrhage [Recovered/Resolved]
  - Hypoaesthesia [Recovered/Resolved]
  - Macular oedema [Unknown]
  - Disease recurrence [Unknown]
